FAERS Safety Report 9283912 (Version 1)
Quarter: 2013Q2

REPORT INFORMATION
  Report Type: Spontaneous
  Country: US (occurrence: US)
  Receive Date: 20130510
  Receipt Date: 20130510
  Transmission Date: 20140414
  Serious: No
  Sender: FDA-Public Use
  Company Number: US-COVIDIEN/TYCO HEALTHCARE/MALLINCKRODT-T201301357

PATIENT
  Sex: 0

DRUGS (5)
  1. FENTANYL TRANSDERMAL SYSTEM [Suspect]
     Indication: PAIN
     Dosage: 75 MCG/HR, Q 72 HOURS
     Route: 062
     Dates: end: 20130319
  2. FENTANYL TRANSDERMAL SYSTEM [Suspect]
     Dosage: UNK
  3. CYMBALTA [Concomitant]
     Indication: DEPRESSION
     Dosage: UNK
     Dates: end: 2012
  4. GABAPENTIN [Concomitant]
     Indication: NEUROPATHY PERIPHERAL
     Dosage: UNK
  5. DILAUDID [Concomitant]
     Indication: PAIN
     Dosage: 8 MG, BID

REACTIONS (11)
  - Choking sensation [Recovered/Resolved]
  - Hepatic enzyme increased [Unknown]
  - Staphylococcal skin infection [Not Recovered/Not Resolved]
  - Tachyphrenia [Recovered/Resolved]
  - Inappropriate schedule of drug administration [Unknown]
  - Cold sweat [Recovered/Resolved]
  - Feeling of body temperature change [Recovered/Resolved]
  - Memory impairment [Not Recovered/Not Resolved]
  - Insomnia [Recovered/Resolved]
  - Hyperhidrosis [Recovered/Resolved]
  - Heart rate increased [Recovered/Resolved]
